FAERS Safety Report 8907182 (Version 1)
Quarter: 2012Q4

REPORT INFORMATION
  Report Type: 
  Country: US (occurrence: US)
  Receive Date: 20121113
  Receipt Date: 20121113
  Transmission Date: 20130627
  Serious: No
  Sender: FDA-Public Use
  Company Number: US-AMGEN-USASP2012010471

PATIENT
  Sex: Male

DRUGS (12)
  1. ENBREL [Suspect]
     Indication: PRODUCT USED FOR UNKNOWN INDICATION
     Dosage: 50 mg, qwk
  2. METHOTREXATE [Concomitant]
     Dosage: 2.5 mg, UNK
  3. LIPITOR [Concomitant]
     Dosage: 10 mg, UNK
  4. FOLIC ACID [Concomitant]
     Dosage: 1 mg, UNK
  5. DIFLORASONE [Concomitant]
     Dosage: 0.05 %, UNK
  6. HALOBETASOL PROP [Concomitant]
     Dosage: 0.05 %, UNK
  7. IBUPROFEN [Concomitant]
     Dosage: 200 mg, UNK
  8. ALLOPURINOL [Concomitant]
     Dosage: 100 mg, UNK
  9. HYDROCODONE/APAP C III [Concomitant]
  10. BENICAR [Concomitant]
     Dosage: 20 mg, UNK
  11. MULTIVITAMIN                       /00097801/ [Concomitant]
     Dosage: UNK
  12. ASPIRIN [Concomitant]
     Dosage: 81 mg, UNK

REACTIONS (1)
  - Drug ineffective [Unknown]
